FAERS Safety Report 15712911 (Version 2)
Quarter: 2018Q4

REPORT INFORMATION
  Report Type: Spontaneous
  Country: GR (occurrence: GR)
  Receive Date: 20181212
  Receipt Date: 20181224
  Transmission Date: 20190205
  Serious: Yes (Other)
  Sender: FDA-Public Use
  Company Number: PHHY2018GR173055

PATIENT
  Age: 12 Year
  Sex: Male

DRUGS (2)
  1. ACZ885 [Suspect]
     Active Substance: CANAKINUMAB
     Indication: STILL^S DISEASE
     Route: 065
  2. METHOTREXATE. [Concomitant]
     Active Substance: METHOTREXATE
     Indication: HAEMOPHAGOCYTIC LYMPHOHISTIOCYTOSIS
     Route: 065

REACTIONS (2)
  - Haemophagocytic lymphohistiocytosis [Unknown]
  - Juvenile idiopathic arthritis [Unknown]
